FAERS Safety Report 6173483-7 (Version None)
Quarter: 2009Q2

REPORT INFORMATION
  Report Type: 
  Country: None (occurrence: None)
  Receive Date: 20090430
  Receipt Date: 20090422
  Transmission Date: 20091009
  Serious: Yes (Other)
  Sender: FDA-Public Use
  Company Number: A0780148A

PATIENT
  Age: 44 Year
  Sex: Female

DRUGS (6)
  1. LAMICTAL [Suspect]
     Route: 048
     Dates: start: 20020101
  2. LAMOTRIGINE [Suspect]
     Route: 048
  3. DEMEROL [Suspect]
     Indication: DRUG USE FOR UNKNOWN INDICATION
  4. TRAZODONE HCL [Concomitant]
  5. CELEXA [Concomitant]
  6. CLONOPIN [Concomitant]

REACTIONS (6)
  - AMENORRHOEA [None]
  - DRUG INEFFECTIVE [None]
  - DYSMENORRHOEA [None]
  - NEPHROLITHIASIS [None]
  - PAIN [None]
  - VOMITING [None]
